FAERS Safety Report 23676981 (Version 1)
Quarter: 2024Q1

REPORT INFORMATION
  Report Type: Spontaneous
  Country: DE (occurrence: None)
  Receive Date: 20240327
  Receipt Date: 20240327
  Transmission Date: 20240409
  Serious: Yes (Life-Threatening, Hospitalization, Other)
  Sender: FDA-Public Use
  Company Number: 2024A042800

PATIENT
  Age: 26361 Day
  Sex: Female
  Weight: 90 kg

DRUGS (4)
  1. DAPAGLIFLOZIN [Suspect]
     Active Substance: DAPAGLIFLOZIN
     Indication: Diabetes mellitus
     Route: 048
     Dates: start: 20240218, end: 20240319
  2. METFORMIN [Concomitant]
     Active Substance: METFORMIN HYDROCHLORIDE
     Indication: Diabetes mellitus
  3. ENALAPRIL METOPROLOL [Concomitant]
     Indication: Hypertension
     Dosage: 30 MG, 95 MG
  4. TORASEMID HYDROCHLOROTHIAZID [Concomitant]
     Dosage: 5 MG, 12.5 MG
     Route: 048

REACTIONS (2)
  - Fournier^s gangrene [Unknown]
  - Septic shock [Not Recovered/Not Resolved]

NARRATIVE: CASE EVENT DATE: 20240219
